FAERS Safety Report 9557167 (Version 2)
Quarter: 2013Q4

REPORT INFORMATION
  Report Type: Spontaneous
  Country: ES (occurrence: ES)
  Receive Date: 20130926
  Receipt Date: 20131002
  Transmission Date: 20140711
  Serious: Yes (Other)
  Sender: FDA-Public Use
  Company Number: ES-B.I. PHARMACEUTICALS,INC./RIDGEFIELD-2013-BI-29914YA

PATIENT
  Age: 53 Year
  Sex: Female

DRUGS (4)
  1. TAMSULOSINA [Suspect]
     Indication: DYSURIA
     Dosage: 0.4 MG
     Route: 048
     Dates: start: 201308, end: 201308
  2. EUTIROX [Concomitant]
     Indication: HYPOTHYROIDISM
     Route: 048
  3. TOPAMAX [Concomitant]
     Indication: DEPRESSION
     Route: 048
  4. DULOXETINE [Concomitant]
     Indication: DEPRESSION
     Route: 048

REACTIONS (4)
  - Joint stiffness [Recovered/Resolved]
  - Protrusion tongue [Recovered/Resolved]
  - Paraesthesia [Recovered/Resolved]
  - Off label use [Unknown]
